FAERS Safety Report 14232350 (Version 2)
Quarter: 2018Q1

REPORT INFORMATION
  Report Type: Report from Study
  Country: AU (occurrence: AU)
  Receive Date: 20171128
  Receipt Date: 20180223
  Transmission Date: 20180508
  Serious: Yes (Disabling)
  Sender: FDA-Public Use
  Company Number: AU-TOLMAR, INC.-2017AU016251

PATIENT

DRUGS (2)
  1. ELIGARD [Suspect]
     Active Substance: LEUPROLIDE ACETATE
     Indication: PROSTATE CANCER
     Dosage: 22.5 MG, Q3MONTHS
     Route: 065
     Dates: start: 20170825
  2. FIRMAGON [Concomitant]
     Active Substance: DEGARELIX ACETATE

REACTIONS (4)
  - Fatigue [Unknown]
  - Hot flush [Unknown]
  - Emphysema [Unknown]
  - Insomnia [Unknown]
